FAERS Safety Report 10921372 (Version 1)
Quarter: 2015Q1

REPORT INFORMATION
  Report Type: Spontaneous
  Country: US (occurrence: None)
  Receive Date: 20150313
  Receipt Date: 20150313
  Transmission Date: 20150721
  Serious: Yes (Hospitalization)
  Sender: FDA-Public Use
  Company Number: None

PATIENT
  Age: 59 Year
  Sex: Female
  Weight: 60.7 kg

DRUGS (2)
  1. CARBOPLATIN. [Suspect]
     Active Substance: CARBOPLATIN
     Dates: end: 20150217
  2. XANAX [Concomitant]
     Active Substance: ALPRAZOLAM

REACTIONS (2)
  - Acute kidney injury [None]
  - Dehydration [None]

NARRATIVE: CASE EVENT DATE: 20150309
